FAERS Safety Report 23758659 (Version 1)
Quarter: 2024Q2

REPORT INFORMATION
  Report Type: Other
  Country: US (occurrence: None)
  Receive Date: 20240418
  Receipt Date: 20240418
  Transmission Date: 20240716
  Serious: No
  Sender: FDA-Public Use
  Company Number: US-ROCHE-3348304

PATIENT
  Age: 51 Year
  Sex: Male

DRUGS (4)
  1. BEVACIZUMAB [Suspect]
     Active Substance: BEVACIZUMAB
     Indication: Diabetic retinal oedema
     Route: 050
     Dates: start: 201002
  2. METFORMIN [Concomitant]
     Active Substance: METFORMIN HYDROCHLORIDE
     Dates: start: 201002
  3. GLYBURIDE [Concomitant]
     Active Substance: GLYBURIDE
     Dates: start: 201002
  4. RANIBIZUMAB [Concomitant]
     Active Substance: RANIBIZUMAB
     Dates: start: 201508

REACTIONS (5)
  - Nephritis allergic [Unknown]
  - Renal tubular necrosis [Unknown]
  - Intercapillary glomerulosclerosis [Unknown]
  - Off label use [Unknown]
  - Off label use [Unknown]
